FAERS Safety Report 18642838 (Version 1)
Quarter: 2020Q4

REPORT INFORMATION
  Report Type: Report from Study
  Country: IE (occurrence: IE)
  Receive Date: 20201221
  Receipt Date: 20201221
  Transmission Date: 20210114
  Serious: Yes (Hospitalization)
  Sender: FDA-Public Use
  Company Number: IE-MYLANLABS-2020M1103043

PATIENT
  Age: 33 Year
  Sex: Female

DRUGS (23)
  1. NOVORAPID [Concomitant]
     Active Substance: INSULIN ASPART
     Dosage: WITH MEALS
  2. CARBIMAZOLE [Concomitant]
     Active Substance: CARBIMAZOLE
     Dosage: 10 MG, QD
  3. AZITHROMYCIN ANHYDROUS. [Concomitant]
     Active Substance: AZITHROMYCIN ANHYDROUS
     Dosage: 250 MG, QD
     Route: 048
  4. DOCUSATE SODIUM. [Concomitant]
     Active Substance: DOCUSATE SODIUM
     Dosage: 100 MG, QD
     Route: 048
  5. CREON [Concomitant]
     Active Substance: PANCRELIPASE AMYLASE\PANCRELIPASE LIPASE\PANCRELIPASE PROTEASE
     Dosage: 10,000 UNITS WITH MEALS
  6. PANTOPRAZOLE [Suspect]
     Active Substance: PANTOPRAZOLE
     Indication: PRODUCT USED FOR UNKNOWN INDICATION
     Dosage: UNK
     Route: 065
  7. FOSAMAX [Concomitant]
     Active Substance: ALENDRONATE SODIUM
     Dosage: 70 MG WEEKLY ON MONDAY
     Route: 048
  8. LACTULOSE. [Concomitant]
     Active Substance: LACTULOSE
     Dosage: 15 MILLILITER, TID
  9. FAMOTIDINE. [Concomitant]
     Active Substance: FAMOTIDINE
     Dosage: 20 MG, BID
     Route: 048
  10. VENTOLIN [Concomitant]
     Active Substance: ALBUTEROL SULFATE
     Dosage: 5 MG, TID
     Route: 055
  11. LANTUS [Concomitant]
     Active Substance: INSULIN GLARGINE
     Dosage: 6 UNITS
  12. DESUNIN [Concomitant]
     Active Substance: CHOLECALCIFEROL
     Dosage: 800 TT, BID
     Route: 048
  13. METOCLOPRAMIDE. [Concomitant]
     Active Substance: METOCLOPRAMIDE
     Dosage: 10 MG, TID
     Route: 048
  14. CAYSTON [Concomitant]
     Active Substance: AZTREONAM
     Dosage: 75 MG, TID
     Route: 055
  15. ASPIRIN                            /00002701/ [Concomitant]
     Active Substance: ASPIRIN
     Dosage: 75 MG, QD
     Route: 048
  16. PARAVIT [Concomitant]
     Active Substance: ACETAMINOPHEN\ASCORBIC ACID
     Dosage: 1 DOSAGE FORM, BID
  17. NORMACOL [Concomitant]
     Active Substance: HERBALS\KARAYA GUM
     Dosage: 1 DOSAGE FORM, BID
     Route: 048
  18. AMITRIPTYLLINE [Concomitant]
     Active Substance: AMITRIPTYLINE
     Dosage: 60 MG
     Route: 048
  19. KALYDECO [Suspect]
     Active Substance: IVACAFTOR
     Indication: CYSTIC FIBROSIS
     Dosage: ONE TABLET IN THE EVENING
     Route: 048
     Dates: start: 20200205, end: 2020
  20. PULMOZYME [Concomitant]
     Active Substance: DORNASE ALFA
     Dosage: 2.5 MG, QD
     Route: 055
  21. SODIUM CHLORIDE. [Concomitant]
     Active Substance: SODIUM CHLORIDE
     Dosage: 1 DOSAGE FORM, BID
     Route: 055
  22. RESOLOR [Concomitant]
     Active Substance: PRUCALOPRIDE SUCCINATE
     Dosage: 2 MG, QD
     Route: 048
  23. SERETIDE [Concomitant]
     Active Substance: FLUTICASONE PROPIONATE\SALMETEROL XINAFOATE
     Dosage: 250 MICROGRAM, TT BID

REACTIONS (12)
  - Hyperhidrosis [Unknown]
  - Dyspnoea [Unknown]
  - Nephropathy toxic [Recovering/Resolving]
  - Fatigue [Unknown]
  - Nausea [Unknown]
  - Constipation [Unknown]
  - Epistaxis [Unknown]
  - Headache [Unknown]
  - Back pain [Unknown]
  - Asthenia [Unknown]
  - Decreased appetite [Unknown]
  - Dizziness [Unknown]

NARRATIVE: CASE EVENT DATE: 2020
